FAERS Safety Report 16702434 (Version 1)
Quarter: 2019Q4

REPORT INFORMATION
  Report Type: Spontaneous
  Country: US (occurrence: US)
  Receive Date: 20190813
  Receipt Date: 20190813
  Transmission Date: 20200122
  Serious: Yes (Other)
  Sender: FDA-Public Use
  Company Number: None

PATIENT
  Age: 41 Year
  Sex: Female
  Weight: 84.15 kg

DRUGS (8)
  1. VITAMIN D (ERGOCALCIFERO 50000 CAPS) [Concomitant]
  2. FEMRING [Concomitant]
     Active Substance: ESTRADIOL ACETATE
  3. VITAMIN D3 [Concomitant]
     Active Substance: CHOLECALCIFEROL
  4. GENERIC HYDROXYCHLOROQUINE SULFATE 200 [Suspect]
     Active Substance: HYDROXYCHLOROQUINE SULFATE
     Indication: RHEUMATIC DISORDER
     Dosage: ?          OTHER STRENGTH:NOT LISTED;QUANTITY:2 TABLET(S);?
     Route: 048
     Dates: start: 20190730, end: 20190813
  5. LEVOTHYROXINE SODIUM. [Concomitant]
     Active Substance: LEVOTHYROXINE SODIUM
  6. CALCIUM CARBONATE GUMMIES [Concomitant]
  7. PROGESTERONE MICRONIZED [Concomitant]
  8. WOMEN GUMMY MULTI-VITAMIN [Concomitant]

REACTIONS (2)
  - Heart rate increased [None]
  - Dyspnoea [None]

NARRATIVE: CASE EVENT DATE: 20190813
